FAERS Safety Report 18258456 (Version 1)
Quarter: 2020Q3

REPORT INFORMATION
  Report Type: Other
  Country: US (occurrence: US)
  Receive Date: 20200911
  Receipt Date: 20200911
  Transmission Date: 20201103
  Serious: No
  Sender: FDA-Public Use
  Company Number: US-LEADIANT BIOSCIENCES INC-2020STPI000036

PATIENT

DRUGS (6)
  1. LEUCOVORIN CA [Concomitant]
     Active Substance: LEUCOVORIN CALCIUM
  2. ZELBORAF [Concomitant]
     Active Substance: VEMURAFENIB
  3. BACTRIM DS [Concomitant]
     Active Substance: SULFAMETHOXAZOLE\TRIMETHOPRIM
  4. MATULANE [Suspect]
     Active Substance: PROCARBAZINE HYDROCHLORIDE
     Indication: BRAIN NEOPLASM MALIGNANT
     Dosage: 50 MILLIGRAM, TID
     Route: 048
     Dates: start: 20191223
  5. STOOL SOFTENER (DOCUSATE) [Concomitant]
     Active Substance: DOCUSATE
  6. SENOKOT [Concomitant]
     Active Substance: SENNOSIDES

REACTIONS (1)
  - Constipation [Unknown]
